FAERS Safety Report 5793761-0 (Version None)
Quarter: 2008Q2

REPORT INFORMATION
  Report Type: 
  Country: None (occurrence: None)
  Receive Date: 20080627
  Receipt Date: 20080620
  Transmission Date: 20081010
  Serious: Yes (Other)
  Sender: FDA-Public Use
  Company Number: US-PFIZER INC-2008052289

PATIENT
  Sex: Female
  Weight: 63.1 kg

DRUGS (7)
  1. LIPITOR [Suspect]
     Indication: BLOOD CHOLESTEROL INCREASED
     Route: 048
  2. ELAVIL [Concomitant]
  3. PROTONIX [Concomitant]
  4. FLEXERIL [Concomitant]
  5. LIBRAX [Concomitant]
  6. ALL OTHER THERAPEUTIC PRODUCTS [Concomitant]
     Indication: IRRITABLE BOWEL SYNDROME
     Dosage: FREQ:AS NEEDED
  7. VITAMINS [Concomitant]

REACTIONS (4)
  - AMNESIA [None]
  - BLADDER OPERATION [None]
  - DISTURBANCE IN ATTENTION [None]
  - MYALGIA [None]
